FAERS Safety Report 7799787 (Version 4)
Quarter: 2012Q4

REPORT INFORMATION
  Report Type: Report from Study
  Country: IT (occurrence: IT)
  Receive Date: 20110204
  Receipt Date: 20121029
  Transmission Date: 20130627
  Serious: Yes (Life-Threatening)
  Sender: FDA-Public Use
  Company Number: IT-ROCHE-757153

PATIENT
  Age: 70 Year
  Sex: Female

DRUGS (7)
  1. PEG-INTERFERON ALFA 2A [Suspect]
     Indication: HEPATITIS C
     Route: 065
     Dates: start: 20100913, end: 20110131
  2. RIBAVIRIN [Suspect]
     Indication: HEPATITIS C
     Dosage: FREQUENCY: DIE.
     Route: 065
     Dates: start: 20100913, end: 20101230
  3. METFORMIN [Concomitant]
     Indication: DIABETES MELLITUS
     Dosage: FREQUENCY: DIE.
     Route: 065
  4. HUMALOG [Concomitant]
     Indication: DIABETES MELLITUS
     Dosage: DOSE: 78 UNITS; FREQUENCY: DIE.
     Route: 065
  5. LANTUS [Concomitant]
     Indication: DIABETES MELLITUS
     Dosage: DOSE: 40 UNITS; FREQUENCY: DIE.
     Route: 065
  6. CITOFOLIN [Concomitant]
     Indication: ANAEMIA
     Dosage: FREQUENCY: DIE.
     Route: 065
  7. DOBETIN [Concomitant]
     Indication: ANAEMIA
     Dosage: DOSE: 5000 UI; FREQUENCY: DIE.
     Route: 065

REACTIONS (1)
  - Cardiac failure congestive [Recovered/Resolved]
